FAERS Safety Report 4579710-1 (Version None)
Quarter: 2005Q1

REPORT INFORMATION
  Report Type: 
  Country: None (occurrence: None)
  Receive Date: 20050210
  Receipt Date: 20050210
  Transmission Date: 20050727
  Serious: Yes (Hospitalization)
  Sender: FDA-Public Use
  Company Number: None

PATIENT
  Sex: Male
  Weight: 77 kg

DRUGS (12)
  1. NAPROXEN [Suspect]
     Indication: HERPES ZOSTER
     Dosage: ORAL
     Route: 048
     Dates: start: 20041120, end: 20041212
  2. PREDNISONE [Suspect]
     Indication: HERPES ZOSTER
     Dosage: ORAL
     Route: 048
     Dates: start: 20041120, end: 20041212
  3. FLUNISOLIDE [Concomitant]
  4. CHLORPHENIRAMINE MALEATE [Concomitant]
  5. TRAVOPROST [Concomitant]
  6. ARTIFICIAL TEARS [Concomitant]
  7. METHYCELLULOSE [Concomitant]
  8. DOXAZOSIN MESYLATE [Concomitant]
  9. ATENOLOL [Concomitant]
  10. METHOCARBAMOL [Concomitant]
  11. NAPROXEN [Concomitant]
  12. FORMOTEROL FUMARATE [Concomitant]

REACTIONS (4)
  - AORTIC ANEURYSM [None]
  - GASTROINTESTINAL ULCER HAEMORRHAGE [None]
  - HAEMATOCRIT DECREASED [None]
  - HELICOBACTER PYLORI IDENTIFICATION TEST POSITIVE [None]
